FAERS Safety Report 7861388-2 (Version None)
Quarter: 2011Q4

REPORT INFORMATION
  Report Type: 
  Country: None (occurrence: None)
  Receive Date: 20111027
  Receipt Date: 20111025
  Transmission Date: 20120403
  Serious: Yes (Life-Threatening, Hospitalization)
  Sender: FDA-Public Use
  Company Number: JP-B.I. PHARMACEUTICALS,INC./RIDGEFIELD-2011-BP-24540NB

PATIENT
  Age: 70 Year
  Sex: Female

DRUGS (2)
  1. DIGITALIS TAB [Concomitant]
     Route: 048
  2. PRADAXA [Suspect]
     Indication: ATRIAL FIBRILLATION
     Dosage: 220 MG
     Route: 048
     Dates: start: 20110322, end: 20110323

REACTIONS (4)
  - CARDIAC TAMPONADE [None]
  - MYOCARDIAL ISCHAEMIA [None]
  - AORTIC DISSECTION [None]
  - HAEMORRHAGIC DIATHESIS [None]
